FAERS Safety Report 18817478 (Version 3)
Quarter: 2021Q1

REPORT INFORMATION
  Report Type: Report from Study
  Country: US (occurrence: US)
  Receive Date: 20210201
  Receipt Date: 20210225
  Transmission Date: 20210419
  Serious: Yes (Other)
  Sender: FDA-Public Use
  Company Number: US-ASTRAZENECA-2021A016850

PATIENT
  Sex: Female
  Weight: 71.2 kg

DRUGS (7)
  1. MUCINEX [Concomitant]
     Active Substance: GUAIFENESIN
  2. OXYCODONE [Concomitant]
     Active Substance: OXYCODONE
  3. LOSARTAN. [Concomitant]
     Active Substance: LOSARTAN
  4. GABAPENTIN. [Concomitant]
     Active Substance: GABAPENTIN
  5. ATORVASTATIN [Concomitant]
     Active Substance: ATORVASTATIN
  6. TYLENOL [Concomitant]
     Active Substance: ACETAMINOPHEN
  7. TAGRISSO [Suspect]
     Active Substance: OSIMERTINIB
     Indication: BONE CANCER
     Route: 048

REACTIONS (9)
  - Dry eye [Not Recovered/Not Resolved]
  - Pruritus [Unknown]
  - Hair texture abnormal [Not Recovered/Not Resolved]
  - Photophobia [Unknown]
  - Skin exfoliation [Unknown]
  - Nasopharyngitis [Not Recovered/Not Resolved]
  - Dry skin [Not Recovered/Not Resolved]
  - Drug resistance [Not Recovered/Not Resolved]
  - Drug ineffective [Unknown]
